FAERS Safety Report 8388605-7 (Version None)
Quarter: 2012Q2

REPORT INFORMATION
  Report Type: 
  Country: None (occurrence: None)
  Receive Date: 20120525
  Receipt Date: 20120521
  Transmission Date: 20120825
  Serious: Yes (Hospitalization, Other)
  Sender: FDA-Public Use
  Company Number: US-TEVA-339182USA

PATIENT
  Sex: Female
  Weight: 54 kg

DRUGS (16)
  1. ALLOPURINOL [Concomitant]
     Dosage: 300 MILLIGRAM;
  2. FLUCONAZOLE [Concomitant]
     Dosage: 200 MILLIGRAM;
  3. MULTI-VITAMIN [Concomitant]
  4. CIPROFLOXACIN [Concomitant]
     Dosage: 500 MILLIGRAM;
  5. COPPER [Concomitant]
     Dosage: 4 MILLIGRAM;
  6. GABAPENTIN [Concomitant]
     Dosage: 300 MILLIGRAM;
  7. TREANDA [Suspect]
     Indication: ACUTE MYELOID LEUKAEMIA
     Route: 042
     Dates: start: 20120507
  8. MESALAMINE [Concomitant]
     Dosage: 1200 MILLIGRAM;
  9. LEVOTHYROXINE SODIUM [Concomitant]
     Dosage: 200 MICROGRAM;
  10. CITALOPRAM HYDROBROMIDE [Concomitant]
     Dosage: 20 MILLIGRAM;
  11. MELATONIN [Concomitant]
     Dosage: QHS
  12. COLECALCIFEROL [Concomitant]
  13. IDARUBICIN HCL [Suspect]
     Indication: ACUTE MYELOID LEUKAEMIA
     Route: 042
     Dates: start: 20120507
  14. POTASSIUM CHLORIDE [Concomitant]
     Dosage: 40 MILLIEQUIVALENTS;
  15. PREDNISONE TAB [Concomitant]
     Dosage: 10 MILLIGRAM;
  16. OMEPRAZOLE [Concomitant]
     Dosage: 20 MILLIGRAM;

REACTIONS (2)
  - RENAL FAILURE ACUTE [None]
  - BACTERAEMIA [None]
